FAERS Safety Report 14202346 (Version 1)
Quarter: 2017Q4

REPORT INFORMATION
  Report Type: Spontaneous
  Country: US (occurrence: US)
  Receive Date: 20171117
  Receipt Date: 20171117
  Transmission Date: 20180321
  Serious: Yes (Life-Threatening)
  Sender: FDA-Public Use
  Company Number: US-SYNEX-T201704522

PATIENT
  Age: 42 Year
  Sex: Male

DRUGS (1)
  1. INOMAX [Suspect]
     Active Substance: NITRIC OXIDE
     Indication: TRICUSPID VALVE REPLACEMENT
     Dosage: 30PPM
     Route: 065

REACTIONS (5)
  - Product use issue [Unknown]
  - Unresponsive to stimuli [Unknown]
  - Blood pressure decreased [Unknown]
  - Hypoxia [Unknown]
  - Device issue [Unknown]
